FAERS Safety Report 7319147-5 (Version None)
Quarter: 2011Q1

REPORT INFORMATION
  Report Type: 
  Country: None (occurrence: None)
  Receive Date: 20110228
  Receipt Date: 20110216
  Transmission Date: 20110831
  Serious: Yes (Other)
  Sender: FDA-Public Use
  Company Number: PHHY2011VE13249

PATIENT
  Sex: Female

DRUGS (1)
  1. ACLASTA [Suspect]
     Indication: OSTEOPOROSIS
     Dosage: 5 MG/ YEAR
     Route: 042
     Dates: start: 20100610

REACTIONS (6)
  - HYPOAESTHESIA [None]
  - HEAD INJURY [None]
  - CEREBROVASCULAR ACCIDENT [None]
  - APHASIA [None]
  - FALL [None]
  - SYNCOPE [None]
